FAERS Safety Report 23337159 (Version 1)
Quarter: 2023Q4

REPORT INFORMATION
  Report Type: Spontaneous
  Country: IT (occurrence: IT)
  Receive Date: 20231226
  Receipt Date: 20231226
  Transmission Date: 20240110
  Serious: Yes (Death, Other)
  Sender: FDA-Public Use
  Company Number: IT-CELLTRION INC.-2023IT024285

PATIENT

DRUGS (13)
  1. RITUXIMAB [Suspect]
     Active Substance: RITUXIMAB
     Indication: Follicular lymphoma
     Dosage: 250 MG/KG, UNK (ON DAY - 21)
  2. RITUXIMAB [Suspect]
     Active Substance: RITUXIMAB
     Indication: Non-Hodgkin^s lymphoma refractory
     Dosage: 250 MG/KG, UNK (ON DAY - 14) UNK
  3. CYTARABINE [Suspect]
     Active Substance: CYTARABINE
     Indication: Non-Hodgkin^s lymphoma refractory
     Dosage: 400 MG/M2, 1/DAY (ON DAY 5 TO DAY 2)
  4. CYTARABINE [Suspect]
     Active Substance: CYTARABINE
     Indication: Surgical preconditioning
     Dosage: 400 MG/M2, 1/DAY; 200 MG/M2, UNK, TWICE A DAY ON DAYS - 5 TO - 2 ; CYCLIC
  5. ETOPOSIDE [Suspect]
     Active Substance: ETOPOSIDE
     Indication: Surgical preconditioning
     Dosage: 200 MG/M2, UNK, ON DAYS - 5 TO - 2 CYCLIC
  6. ETOPOSIDE [Suspect]
     Active Substance: ETOPOSIDE
     Indication: Non-Hodgkin^s lymphoma refractory
     Dosage: 200 MG/M2; ON DAY 5 TO DAY 2,
  7. MELPHALAN [Suspect]
     Active Substance: MELPHALAN
     Indication: Surgical preconditioning
     Dosage: 140 MG/M2, QD, ON DAY - 1 ; CYCLICAL
  8. MELPHALAN [Suspect]
     Active Substance: MELPHALAN
     Indication: Non-Hodgkin^s lymphoma refractory
     Dosage: 140 MG/M2, QD; ON DAY 1
  9. ZEVALIN [Suspect]
     Active Substance: IBRITUMOMAB TIUXETAN
     Indication: Non-Hodgkin^s lymphoma refractory
     Dosage: WITH A MAXIMUM TOTAL DOSE OF 32 MCI
  10. CARMUSTINE [Suspect]
     Active Substance: CARMUSTINE
     Indication: Non-Hodgkin^s lymphoma refractory
     Dosage: 300 MG/M2 (ON DAY 6,)
  11. CARMUSTINE [Suspect]
     Active Substance: CARMUSTINE
     Indication: Surgical preconditioning
     Dosage: 300 MG/M2, UNK, ON DAYS 6 CYCLIC
  12. ZEVALIN [Suspect]
     Active Substance: IBRITUMOMAB TIUXETAN
     Indication: Surgical preconditioning
     Dosage: WITH A MAXIMUM TOTAL DOSE OF 0.4 MCI/KG
  13. GRANULOCYTE COLONY-STIMULATING FACTOR NOS [Concomitant]
     Active Substance: GRANULOCYTE COLONY-STIMULATING FACTOR NOS
     Indication: Product used for unknown indication
     Dosage: 5 MICROGRAM/KILOGRAM, 1/DAY (5?G/KG, QD, ON DAY +1)

REACTIONS (5)
  - Progressive multifocal leukoencephalopathy [Fatal]
  - JC virus infection [Fatal]
  - Follicular lymphoma [Unknown]
  - Myelodysplastic syndrome with excess blasts [Unknown]
  - Intentional product use issue [Unknown]
